FAERS Safety Report 8616535 (Version 4)
Quarter: 2014Q1

REPORT INFORMATION
  Report Type: Spontaneous
  Country: US (occurrence: US)
  Receive Date: 20120615
  Receipt Date: 20140114
  Transmission Date: 20141002
  Serious: Yes (Disabling)
  Sender: FDA-Public Use
  Company Number: US-ASTRAZENECA-2012SE35577

PATIENT
  Age: 40 Year
  Sex: Male

DRUGS (21)
  1. NEXIUM [Suspect]
     Indication: DYSPEPSIA
     Dosage: ONC PER DAY OR TWO PER DAY
     Route: 048
     Dates: start: 2002, end: 2011
  2. NEXIUM [Suspect]
     Indication: GASTROOESOPHAGEAL REFLUX DISEASE
     Dosage: ONC PER DAY OR TWO PER DAY
     Route: 048
     Dates: start: 2002, end: 2011
  3. NEXIUM [Suspect]
     Indication: GASTROINTESTINAL DISORDER
     Dosage: ONC PER DAY OR TWO PER DAY
     Route: 048
     Dates: start: 2002, end: 2011
  4. NEXIUM [Suspect]
     Indication: DYSPEPSIA
     Route: 048
     Dates: start: 2003, end: 2012
  5. NEXIUM [Suspect]
     Indication: GASTROOESOPHAGEAL REFLUX DISEASE
     Route: 048
     Dates: start: 2003, end: 2012
  6. NEXIUM [Suspect]
     Indication: GASTROINTESTINAL DISORDER
     Route: 048
     Dates: start: 2003, end: 2012
  7. NEXIUM [Suspect]
     Indication: DYSPEPSIA
     Route: 048
     Dates: start: 20100908
  8. NEXIUM [Suspect]
     Indication: GASTROOESOPHAGEAL REFLUX DISEASE
     Route: 048
     Dates: start: 20100908
  9. NEXIUM [Suspect]
     Indication: GASTROINTESTINAL DISORDER
     Route: 048
     Dates: start: 20100908
  10. SIMVASTATIN [Concomitant]
     Dates: start: 20101011
  11. CHLORDIAZEPOXIDE/CLIDINIUM [Concomitant]
     Dates: start: 20101009
  12. GAVISCON [Concomitant]
  13. LISINOPRIL [Concomitant]
  14. LISINOPRIL [Concomitant]
     Route: 048
     Dates: start: 20081208
  15. CALCIUM [Concomitant]
  16. VITAMIN D [Concomitant]
  17. PANTOPRAZOLE [Concomitant]
     Route: 048
  18. FLUOXETINE [Concomitant]
     Dates: start: 20101204
  19. FENOFIBRATE [Concomitant]
     Dates: start: 20101208
  20. ALENDRONATE [Concomitant]
     Dates: start: 20110701
  21. HYDROCHLOROTHIAZIDE [Concomitant]
     Dates: start: 20110828

REACTIONS (7)
  - Foot fracture [Unknown]
  - Osteoporosis [Unknown]
  - Wrist fracture [Unknown]
  - Hand fracture [Unknown]
  - Rib fracture [Unknown]
  - Lower limb fracture [Unknown]
  - Bone loss [Unknown]
